FAERS Safety Report 6153334-7 (Version None)
Quarter: 2009Q2

REPORT INFORMATION
  Report Type: 
  Country: None (occurrence: None)
  Receive Date: 20090413
  Receipt Date: 20090330
  Transmission Date: 20091009
  Serious: Yes (Hospitalization)
  Sender: FDA-Public Use
  Company Number: PHHO2009IL04263

PATIENT
  Sex: Female

DRUGS (2)
  1. ZOLEDRONIC ACID [Suspect]
     Indication: RESORPTION BONE INCREASED
     Dosage: 4 MG Q6MO
     Route: 042
     Dates: start: 20090316, end: 20090316
  2. ENALADEX [Concomitant]
     Indication: HYPERTENSION

REACTIONS (3)
  - DISORDER OF ORBIT [None]
  - LENS DISORDER [None]
  - SCLERITIS [None]
